FAERS Safety Report 15957684 (Version 1)
Quarter: 2019Q1

REPORT INFORMATION
  Report Type: Spontaneous
  Country: US (occurrence: US)
  Receive Date: 20190213
  Receipt Date: 20190213
  Transmission Date: 20190417
  Serious: No
  Sender: FDA-Public Use
  Company Number: US-SA-2019SA039549

PATIENT
  Age: 80 Year
  Sex: Male

DRUGS (1)
  1. PRALUENT [Suspect]
     Active Substance: ALIROCUMAB
     Indication: CAROTID ARTERY OCCLUSION
     Dosage: 75 MG, QOW
     Route: 058
     Dates: start: 20190115

REACTIONS (3)
  - Condition aggravated [Unknown]
  - Restless legs syndrome [Unknown]
  - Paraesthesia [Unknown]
